FAERS Safety Report 8101259-X (Version None)
Quarter: 2012Q1

REPORT INFORMATION
  Report Type: 
  Country: None (occurrence: None)
  Receive Date: 20120129
  Receipt Date: 20110920
  Transmission Date: 20120608
  Serious: No
  Sender: FDA-Public Use
  Company Number: US-ABBOTT-11P-163-0856154-00

PATIENT
  Age: 43 Year
  Sex: Female

DRUGS (1)
  1. HUMIRA [Suspect]
     Indication: JUVENILE ARTHRITIS

REACTIONS (4)
  - DEHYDRATION [None]
  - PNEUMONIA [None]
  - EYE SWELLING [None]
  - PHARYNGEAL OEDEMA [None]
